FAERS Safety Report 8209939-2 (Version None)
Quarter: 2012Q1

REPORT INFORMATION
  Report Type: 
  Country: None (occurrence: None)
  Receive Date: 20120314
  Receipt Date: 20110413
  Transmission Date: 20120608
  Serious: No
  Sender: FDA-Public Use
  Company Number: US-ASTRAZENECA-2011SE21158

PATIENT
  Age: 60 Year
  Sex: Female

DRUGS (1)
  1. TOPROL-XL [Suspect]
     Indication: BLOOD PRESSURE ABNORMAL
     Route: 048
     Dates: start: 20090101

REACTIONS (7)
  - HAEMORRHOIDS [None]
  - NAUSEA [None]
  - FATIGUE [None]
  - STRESS [None]
  - SOMNOLENCE [None]
  - CONSTIPATION [None]
  - FAECES HARD [None]
